FAERS Safety Report 7333494-2 (Version None)
Quarter: 2011Q1

REPORT INFORMATION
  Report Type: 
  Country: None (occurrence: None)
  Receive Date: 20110304
  Receipt Date: 20110228
  Transmission Date: 20110831
  Serious: Yes (Other)
  Sender: FDA-Public Use
  Company Number: US-PFIZER INC-US-WYE-H16364810

PATIENT
  Sex: Female
  Weight: 77 kg

DRUGS (15)
  1. CLARITIN [Concomitant]
     Dosage: UNK
  2. LORTAB [Concomitant]
     Dosage: PRN
  3. ZETIA [Concomitant]
     Dosage: 10 MG, 1X/DAY
  4. LISINOPRIL [Concomitant]
     Dosage: 20 MG, 2X/DAY
  5. LEXAPRO [Concomitant]
     Indication: ANXIETY
     Dosage: 10 MG, 1X/DAY
     Dates: start: 20090601
  6. LEXAPRO [Concomitant]
     Dosage: 5 MG, 1X/DAY
     Dates: start: 20090601, end: 20090601
  7. AMBIEN [Concomitant]
     Indication: INSOMNIA
     Dosage: 12.5 MG, 1X/DAY
  8. PREMARIN [Concomitant]
  9. EFFEXOR XR [Suspect]
     Indication: MAJOR DEPRESSION
     Dosage: 37.5 MG, 1X/DAY
     Dates: start: 20090601, end: 20090701
  10. EFFEXOR XR [Suspect]
     Indication: ANXIETY
     Dosage: 37.5 MG, 2X/DAY
     Dates: start: 20090701, end: 20090901
  11. LEXAPRO [Concomitant]
     Dosage: 5 MG, 2X/DAY
     Dates: start: 20090601, end: 20090601
  12. NIACIN [Concomitant]
     Dosage: 100 MG, 2X/DAY
  13. METOPROLOL [Concomitant]
     Dosage: 50 MG, 2X/DAY
  14. TRAZODONE [Concomitant]
     Dosage: 50 MG
  15. ATIVAN [Concomitant]
     Dosage: 1 MG PRN

REACTIONS (38)
  - MOOD SWINGS [None]
  - ASTHENIA [None]
  - NAUSEA [None]
  - LIMB INJURY [None]
  - DIARRHOEA [None]
  - FALL [None]
  - CARPAL TUNNEL SYNDROME [None]
  - PSYCHOTIC DISORDER [None]
  - SUICIDE ATTEMPT [None]
  - HEAD BANGING [None]
  - TINNITUS [None]
  - WEIGHT INCREASED [None]
  - SOMNAMBULISM [None]
  - MELANOSIS COLI [None]
  - DIZZINESS [None]
  - HOSTILITY [None]
  - ANGER [None]
  - DRUG WITHDRAWAL SYNDROME [None]
  - HALLUCINATION, AUDITORY [None]
  - DYSPNOEA [None]
  - PALPITATIONS [None]
  - INSOMNIA [None]
  - FOOT FRACTURE [None]
  - RESTLESSNESS [None]
  - SPINAL OSTEOARTHRITIS [None]
  - PANIC ATTACK [None]
  - LIGAMENT SPRAIN [None]
  - LOSS OF CONSCIOUSNESS [None]
  - TRAUMATIC BRAIN INJURY [None]
  - UPPER LIMB FRACTURE [None]
  - DEPRESSION [None]
  - IMPULSIVE BEHAVIOUR [None]
  - ACTIVITIES OF DAILY LIVING IMPAIRED [None]
  - PARANOIA [None]
  - VOMITING [None]
  - SEROTONIN SYNDROME [None]
  - AGGRESSION [None]
  - NERVOUSNESS [None]
